FAERS Safety Report 9490117 (Version 1)
Quarter: 2013Q3

REPORT INFORMATION
  Report Type: Spontaneous
  Country: GB (occurrence: GB)
  Receive Date: 20130830
  Receipt Date: 20130830
  Transmission Date: 20140515
  Serious: Yes (Hospitalization)
  Sender: FDA-Public Use
  Company Number: GB-ABBOTT-13X-167-1137393-00

PATIENT
  Age: 74 Year
  Sex: Female

DRUGS (3)
  1. CLARITHROMYCIN [Suspect]
     Indication: BLISTER INFECTED
     Route: 048
  2. CLARITHROMYCIN [Interacting]
     Indication: DIABETIC FOOT
  3. SIMVASTATIN [Interacting]
     Indication: PRODUCT USED FOR UNKNOWN INDICATION
     Route: 048

REACTIONS (3)
  - Muscular weakness [Unknown]
  - Drug interaction [Unknown]
  - Malaise [Unknown]
